FAERS Safety Report 7091204-0 (Version None)
Quarter: 2010Q4

REPORT INFORMATION
  Report Type: 
  Country: None (occurrence: None)
  Receive Date: 20101109
  Receipt Date: 20101105
  Transmission Date: 20110411
  Serious: Yes (Other)
  Sender: FDA-Public Use
  Company Number: KP-ROXANE LABORATORIES, INC.-2010-RO-01462RO

PATIENT
  Age: 70 Year
  Sex: Male

DRUGS (2)
  1. PREDNISONE [Suspect]
     Indication: PROSTATE CANCER
  2. DOCETAXEL [Suspect]
     Indication: PROSTATE CANCER

REACTIONS (1)
  - ONYCHOCLASIS [None]
